FAERS Safety Report 5364138-7 (Version None)
Quarter: 2007Q2

REPORT INFORMATION
  Report Type: 
  Country: None (occurrence: None)
  Receive Date: 20070620
  Receipt Date: 20070607
  Transmission Date: 20071010
  Serious: Yes (Hospitalization)
  Sender: FDA-Public Use
  Company Number: CA-ELI_LILLY_AND_COMPANY-CA200706001786

PATIENT
  Age: 73 Year
  Sex: Female

DRUGS (12)
  1. FORTEO [Suspect]
     Indication: OSTEOPOROSIS
     Dosage: 20 UG, DAILY (1/D)
     Route: 058
     Dates: start: 20061001
  2. PREVACID [Concomitant]
  3. ACCURETIC [Concomitant]
  4. NORVASC [Concomitant]
  5. EVISTA [Concomitant]
  6. ZOCOR [Concomitant]
  7. CALCIUM CHLORIDE [Concomitant]
  8. VITAMIN D [Concomitant]
  9. CENTRUM [Concomitant]
  10. ADVIL                              /00109201/ [Concomitant]
     Dosage: UNK, AS NEEDED
  11. ACETAMINOPHEN [Concomitant]
     Dosage: UNK, AS NEEDED
  12. SERC                               /00034201/ [Concomitant]
     Dosage: UNK, AS NEEDED

REACTIONS (5)
  - BACK INJURY [None]
  - BACK PAIN [None]
  - FALL [None]
  - GAIT DISTURBANCE [None]
  - MUSCLE INJURY [None]
